FAERS Safety Report 6126949-X (Version None)
Quarter: 2009Q1

REPORT INFORMATION
  Report Type: 
  Country: None (occurrence: None)
  Receive Date: 20090320
  Receipt Date: 20081029
  Transmission Date: 20090719
  Serious: No
  Sender: FDA-Public Use
  Company Number: US-ABBOTT-08P-163-0484805-00

PATIENT
  Sex: Male
  Weight: 113.5 kg

DRUGS (1)
  1. ERYTHROMYCIN [Suspect]
     Indication: ORAL SURGERY
     Route: 048
     Dates: start: 19770101, end: 19770101

REACTIONS (1)
  - SWOLLEN TONGUE [None]
